FAERS Safety Report 10280020 (Version 1)
Quarter: 2014Q3

REPORT INFORMATION
  Report Type: Spontaneous
  Country: JP (occurrence: None)
  Receive Date: 20140701
  Receipt Date: 20140701
  Transmission Date: 20150326
  Serious: Yes (Other)
  Sender: FDA-Public Use
  Company Number: 2014-JP-0012

PATIENT
  Age: 70 Year
  Sex: Female

DRUGS (1)
  1. FARESTON [Suspect]
     Active Substance: TOREMIFENE CITRATE
     Indication: BREAST CANCER
     Dosage: 40 MG/SQ M
     Route: 048
     Dates: start: 2002, end: 2014

REACTIONS (4)
  - Endometrial cancer [None]
  - Pelvic neoplasm [None]
  - Abdominal distension [None]
  - Blood lactate dehydrogenase increased [None]

NARRATIVE: CASE EVENT DATE: 20140301
